FAERS Safety Report 11695667 (Version 1)
Quarter: 2015Q4

REPORT INFORMATION
  Report Type: Spontaneous
  Country: CA (occurrence: None)
  Receive Date: 20151102
  Receipt Date: 20151102
  Transmission Date: 20160304
  Serious: Yes (Other)
  Sender: FDA-Public Use
  Company Number: 2015CA0645

PATIENT
  Sex: Female

DRUGS (1)
  1. KINERET [Suspect]
     Active Substance: ANAKINRA
     Indication: AUTOINFLAMMATORY DISEASE
     Route: 058
     Dates: start: 20130912

REACTIONS (1)
  - Neuroendocrine tumour [None]
